FAERS Safety Report 8357061-7 (Version None)
Quarter: 2012Q2

REPORT INFORMATION
  Report Type: 
  Country: None (occurrence: None)
  Receive Date: 20120514
  Receipt Date: 20120509
  Transmission Date: 20120825
  Serious: Yes (Life-Threatening, Congenital Anomaly, Other)
  Sender: FDA-Public Use
  Company Number: US-PFIZER INC-2011077299

PATIENT
  Sex: Female
  Weight: 4 kg

DRUGS (3)
  1. MULTI-VITAMINS [Concomitant]
     Dosage: UNK
     Route: 064
  2. ZOLOFT [Suspect]
     Dosage: 100 MG, UNK
     Route: 064
  3. AMBIEN [Concomitant]
     Dosage: 5 MG, UNK
     Route: 064

REACTIONS (13)
  - CARDIAC FAILURE CONGESTIVE [None]
  - MARFAN'S SYNDROME [None]
  - VENTRICULAR SEPTAL DEFECT [None]
  - MITRAL VALVE INCOMPETENCE [None]
  - GROSS MOTOR DELAY [None]
  - ATRIAL SEPTAL DEFECT [None]
  - CONGENITAL ANOMALY [None]
  - FOETAL EXPOSURE DURING PREGNANCY [None]
  - PATENT DUCTUS ARTERIOSUS [None]
  - TRICUSPID VALVE INCOMPETENCE [None]
  - PULMONARY VALVE INCOMPETENCE [None]
  - CARDIOMEGALY [None]
  - GASTROOESOPHAGEAL REFLUX DISEASE [None]
